FAERS Safety Report 7208245-2 (Version None)
Quarter: 2011Q1

REPORT INFORMATION
  Report Type: 
  Country: None (occurrence: None)
  Receive Date: 20110104
  Receipt Date: 20101027
  Transmission Date: 20110831
  Serious: Yes (Death)
  Sender: FDA-Public Use
  Company Number: ES-PFIZER INC-ES-WYE-G06875810

PATIENT
  Age: 57 Year
  Sex: Male

DRUGS (11)
  1. CALCIUM CARBONATE, CHOLECALCIFEROL [Concomitant]
     Dosage: UNK
     Route: 048
     Dates: start: 20100112, end: 20100716
  2. SUNITINIB [Suspect]
     Dosage: 50 MG, 1X/DAY
     Route: 048
     Dates: start: 20100624, end: 20100716
  3. SUNITINIB [Suspect]
     Indication: RENAL CANCER
     Dosage: 25 MG, 1X/DAY
     Route: 048
     Dates: start: 20100610, end: 20100624
  4. ALLOPURINOL [Concomitant]
     Dosage: UNK
     Route: 048
     Dates: start: 20100112, end: 20100716
  5. AMLODIPINE BESILATE [Concomitant]
     Dosage: UNK
     Route: 048
     Dates: start: 20100122, end: 20100716
  6. LOSARTAN [Concomitant]
     Dosage: UNK
     Route: 048
     Dates: start: 20100122, end: 20100716
  7. DARBEPOETIN ALFA [Concomitant]
     Dosage: UNK
     Route: 058
     Dates: start: 20100112, end: 20100616
  8. DOXAZOSIN [Concomitant]
     Dosage: UNK
     Route: 048
     Dates: start: 20100122, end: 20100716
  9. TORISEL [Suspect]
     Indication: RENAL CANCER
     Dosage: 25 MG, 1X/WK
     Route: 065
     Dates: start: 20100204, end: 20100225
  10. CARVEDILOL [Concomitant]
     Dosage: UNK
     Route: 048
     Dates: start: 20100122, end: 20100716
  11. OMEPRAZOLE [Concomitant]
     Dosage: UNK
     Route: 048
     Dates: start: 20100112, end: 20100716

REACTIONS (3)
  - CARDIAC ARREST [None]
  - CARDIOTOXICITY [None]
  - ASTHENIA [None]
